FAERS Safety Report 9352664 (Version 2)
Quarter: 2013Q3

REPORT INFORMATION
  Report Type: Report from Study
  Country: BG (occurrence: BG)
  Receive Date: 20130618
  Receipt Date: 20130827
  Transmission Date: 20140515
  Serious: Yes (Hospitalization)
  Sender: FDA-Public Use
  Company Number: BG-ROCHE-1180099

PATIENT
  Age: 34 Year
  Sex: Female
  Weight: 50 kg

DRUGS (4)
  1. TRASTUZUMAB EMTANSINE [Suspect]
     Indication: BREAST CANCER
     Dosage: LAST DOSE 11/DEC/2012: 183.6 MG; DATE OF LAST DOSE PRIOR TO HYPERBILIRUBINEMIA: 30/APR/2013: 187.2MG
     Route: 042
     Dates: start: 20121030
  2. LAPATINIB [Suspect]
     Indication: BREAST CANCER
     Route: 048
     Dates: start: 20110210
  3. CAPECITABINE [Suspect]
     Indication: BREAST CANCER
     Route: 048
     Dates: start: 20110210
  4. ZOMETA [Concomitant]
     Indication: METASTASES TO BONE
     Route: 065
     Dates: start: 201101

REACTIONS (2)
  - Haemoglobin decreased [Recovered/Resolved]
  - Hyperbilirubinaemia [Recovered/Resolved]
